FAERS Safety Report 11807587 (Version 1)
Quarter: 2015Q4

REPORT INFORMATION
  Report Type: Other
  Country: IT (occurrence: IT)
  Receive Date: 20151207
  Receipt Date: 20151207
  Transmission Date: 20160305
  Serious: Yes (Other)
  Sender: FDA-Public Use
  Company Number: IT-MYLANLABS-2015M1042547

PATIENT

DRUGS (11)
  1. OLANZAPINA ACTAVIS [Suspect]
     Active Substance: OLANZAPINE
     Indication: PRODUCT USED FOR UNKNOWN INDICATION
     Dosage: 10 MG, QD
     Route: 048
  2. HALDOL [Suspect]
     Active Substance: HALOPERIDOL
     Indication: PRODUCT USED FOR UNKNOWN INDICATION
     Dosage: 2 MG, QD
     Route: 048
  3. SERTRALINE HYDROCHLORIDE. [Suspect]
     Active Substance: SERTRALINE HYDROCHLORIDE
     Dosage: UNK
     Dates: start: 20151102, end: 20151102
  4. HALDOL [Suspect]
     Active Substance: HALOPERIDOL
     Dosage: UNK
     Dates: start: 20151102, end: 20151102
  5. OLANZAPINA ACTAVIS [Suspect]
     Active Substance: OLANZAPINE
     Dosage: UNK
     Dates: start: 20151102, end: 20151102
  6. SERTRALINE HYDROCHLORIDE. [Suspect]
     Active Substance: SERTRALINE HYDROCHLORIDE
     Indication: PRODUCT USED FOR UNKNOWN INDICATION
     Dosage: UNK
     Route: 048
  7. COCAINE [Suspect]
     Active Substance: COCAINE
     Indication: PRODUCT USED FOR UNKNOWN INDICATION
     Dosage: UNK
  8. QUETIAPINA TEVA [Suspect]
     Active Substance: QUETIAPINE
     Indication: PRODUCT USED FOR UNKNOWN INDICATION
     Dosage: 300 MG, QD
     Route: 048
  9. LORAZEPAM ABC [Suspect]
     Active Substance: LORAZEPAM
     Indication: PRODUCT USED FOR UNKNOWN INDICATION
     Dosage: 2.5 MG, QD
     Route: 048
  10. LORAZEPAM ABC [Suspect]
     Active Substance: LORAZEPAM
     Dosage: UNK
     Dates: start: 20151102, end: 20151102
  11. QUETIAPINA TEVA [Suspect]
     Active Substance: QUETIAPINE
     Dosage: UNK
     Dates: start: 20151102, end: 20151102

REACTIONS (4)
  - Self injurious behaviour [Unknown]
  - Drug abuse [Unknown]
  - Dyskinesia [Unknown]
  - Dystonia [Unknown]

NARRATIVE: CASE EVENT DATE: 20151102
